FAERS Safety Report 7898329-8 (Version None)
Quarter: 2011Q4

REPORT INFORMATION
  Report Type: 
  Country: None (occurrence: None)
  Receive Date: 20111107
  Receipt Date: 20111104
  Transmission Date: 20120403
  Serious: Yes (Death)
  Sender: FDA-Public Use
  Company Number: AU-B.I. PHARMACEUTICALS,INC./RIDGEFIELD-2011-AU-02052AU

PATIENT
  Age: 82 Year
  Sex: Male

DRUGS (7)
  1. ALDACTONE [Concomitant]
  2. SINGULAIR [Concomitant]
  3. PRADAXA [Suspect]
     Indication: ATRIAL FIBRILLATION
     Dates: start: 20110811
  4. LANOXIN [Concomitant]
  5. PRILOSEC [Concomitant]
  6. FLUTICASONE PROPIONATE/SALMETEROL [Concomitant]
  7. VENTOLIN [Concomitant]

REACTIONS (1)
  - DEATH [None]
